FAERS Safety Report 6054508-6 (Version None)
Quarter: 2009Q1

REPORT INFORMATION
  Report Type: 
  Country: None (occurrence: None)
  Receive Date: 20090127
  Receipt Date: 20090114
  Transmission Date: 20090719
  Serious: Yes (Hospitalization)
  Sender: FDA-Public Use
  Company Number: PHHY2009FR01902

PATIENT
  Age: 54 Year
  Sex: Female

DRUGS (16)
  1. VOLTARENE [Suspect]
     Dosage: UNK
     Dates: start: 20080630, end: 20080704
  2. FUNGIZONE [Suspect]
     Dosage: 1500 MG/DAY (6 CAPSULES DAILY)
     Route: 048
     Dates: start: 20080611, end: 20080626
  3. KETEK [Suspect]
     Dosage: 1 DF/DAY
     Route: 048
     Dates: start: 20080630, end: 20080704
  4. CYCLOSPORINE [Concomitant]
  5. HEPARIN [Concomitant]
  6. PENTACARINAT [Concomitant]
  7. ZOVIRAX [Concomitant]
  8. ZELITREX [Concomitant]
  9. BACTRIM [Concomitant]
  10. LASILIX [Concomitant]
  11. ALDACTONE [Concomitant]
  12. INIPOMP [Concomitant]
  13. LAROXYL [Concomitant]
  14. TRAMADOL HCL [Concomitant]
  15. NEURONTIN [Concomitant]
     Dosage: UNK
     Dates: start: 20080630
  16. MIOREL [Concomitant]
     Dosage: UNK
     Dates: start: 20080630, end: 20080706

REACTIONS (10)
  - ACUTE PULMONARY OEDEMA [None]
  - ALANINE AMINOTRANSFERASE INCREASED [None]
  - ASPARTATE AMINOTRANSFERASE INCREASED [None]
  - BIOPSY HEART [None]
  - BLOOD ALKALINE PHOSPHATASE [None]
  - DYSPNOEA [None]
  - EJECTION FRACTION DECREASED [None]
  - MITRAL VALVE INCOMPETENCE [None]
  - MYOCARDITIS [None]
  - PAIN IN EXTREMITY [None]
